FAERS Safety Report 17981634 (Version 1)
Quarter: 2020Q3

REPORT INFORMATION
  Report Type: Spontaneous
  Country: GB (occurrence: GB)
  Receive Date: 20200706
  Receipt Date: 20200706
  Transmission Date: 20201103
  Serious: Yes (Death, Other)
  Sender: FDA-Public Use
  Company Number: GB-AUROBINDO-08-AUR-06921

PATIENT
  Age: 56 Year
  Sex: Female

DRUGS (9)
  1. AMOXICILLIN CAPSULES 500MG [Suspect]
     Active Substance: AMOXICILLIN
     Indication: PRODUCT USED FOR UNKNOWN INDICATION
     Dosage: UNK, HIGH DOSE
     Route: 065
  2. VANCOMYCIN [Suspect]
     Active Substance: VANCOMYCIN
     Indication: ENDOCARDITIS
  3. TYGACIL [Suspect]
     Active Substance: TIGECYCLINE
     Indication: BACTERAEMIA
  4. TYGACIL [Suspect]
     Active Substance: TIGECYCLINE
     Indication: INTERVERTEBRAL DISCITIS
  5. VANCOMYCIN [Suspect]
     Active Substance: VANCOMYCIN
     Indication: ENTEROCOCCAL INFECTION
  6. TYGACIL [Suspect]
     Active Substance: TIGECYCLINE
     Indication: ENDOCARDITIS
     Dosage: UNK, STANDARD DOSE
     Route: 065
  7. LINEZOLID. [Concomitant]
     Active Substance: LINEZOLID
     Indication: PRODUCT USED FOR UNKNOWN INDICATION
     Dosage: UNK
     Route: 065
  8. TYGACIL [Suspect]
     Active Substance: TIGECYCLINE
     Indication: ENTEROCOCCAL INFECTION
  9. VANCOMYCIN [Suspect]
     Active Substance: VANCOMYCIN
     Indication: BACTERAEMIA
     Dosage: UNK UNK,UNK,
     Route: 065

REACTIONS (8)
  - Cardiac failure congestive [Fatal]
  - Acute kidney injury [Unknown]
  - Off label use [Not Recovered/Not Resolved]
  - Renal impairment [Unknown]
  - Drug ineffective [Not Recovered/Not Resolved]
  - Drug ineffective for unapproved indication [Not Recovered/Not Resolved]
  - Bacteraemia [Unknown]
  - Clostridium difficile colitis [Unknown]
